FAERS Safety Report 9565445 (Version 3)
Quarter: 2014Q1

REPORT INFORMATION
  Report Type: Spontaneous
  Country: US (occurrence: US)
  Receive Date: 20130930
  Receipt Date: 20140210
  Transmission Date: 20141002
  Serious: Yes (Death)
  Sender: FDA-Public Use
  Company Number: US-009507513-1309USA012268

PATIENT
  Sex: Male

DRUGS (1)
  1. TEMODAR [Suspect]
     Indication: BRAIN NEOPLASM
     Dosage: 250 MG FOR 5 DAYS EVERY 28 DAYS
     Route: 048
     Dates: start: 201202, end: 201210

REACTIONS (1)
  - Brain neoplasm [Fatal]
